FAERS Safety Report 20951395 (Version 1)
Quarter: 2022Q2

REPORT INFORMATION
  Report Type: Report from Study
  Country: DE (occurrence: DE)
  Receive Date: 20220613
  Receipt Date: 20220613
  Transmission Date: 20220721
  Serious: Yes (Other)
  Sender: FDA-Public Use
  Company Number: DE-002147023-NVSC2019DE033806

PATIENT
  Sex: Female
  Weight: 80 kg

DRUGS (3)
  1. LETROZOLE [Suspect]
     Active Substance: LETROZOLE
     Indication: Breast cancer metastatic
     Dosage: 2.5 MILLIGRAM, QD
     Route: 048
     Dates: start: 20180702
  2. KISQALI [Suspect]
     Active Substance: RIBOCICLIB
     Indication: Breast cancer metastatic
     Dosage: 600 MILLIGRAM, QD (600 MG, QD/21DAYS)
     Route: 048
     Dates: start: 20180702, end: 20191223
  3. KISQALI [Suspect]
     Active Substance: RIBOCICLIB
     Dosage: 400 MILLIGRAM, QD,400 MG (SCHEMA 21 DAYS INTAKE, THEN 7 DAYS PAUSE)
     Route: 048
     Dates: start: 20191224

REACTIONS (10)
  - Neutropenia [Recovered/Resolved]
  - Diplopia [Recovered/Resolved]
  - Sleep disorder [Recovered/Resolved]
  - Head discomfort [Recovered/Resolved]
  - Constipation [Recovered/Resolved]
  - Pruritus [Recovered/Resolved]
  - Cough [Recovered/Resolved]
  - Bone pain [Recovered/Resolved]
  - Dyspepsia [Recovered/Resolved]
  - Arthralgia [Not Recovered/Not Resolved]

NARRATIVE: CASE EVENT DATE: 20180709
